FAERS Safety Report 14603810 (Version 4)
Quarter: 2018Q2

REPORT INFORMATION
  Report Type: Spontaneous
  Country: DE (occurrence: DE)
  Receive Date: 20180306
  Receipt Date: 20180530
  Transmission Date: 20180711
  Serious: Yes (Life-Threatening, Hospitalization, Other)
  Sender: FDA-Public Use
  Company Number: DE-JNJFOC-20180302498

PATIENT
  Age: 52 Year
  Sex: Female
  Weight: 88 kg

DRUGS (4)
  1. BISOPROLOL HCT [Concomitant]
     Active Substance: BISOPROLOL FUMARATE\HYDROCHLOROTHIAZIDE
     Route: 065
  2. STELARA [Suspect]
     Active Substance: USTEKINUMAB
     Indication: PSORIASIS
     Route: 058
     Dates: start: 201609
  3. ALCOHOL. [Suspect]
     Active Substance: ALCOHOL
     Indication: PRODUCT USED FOR UNKNOWN INDICATION
     Route: 065
  4. RAMIPRIL. [Concomitant]
     Active Substance: RAMIPRIL
     Route: 065

REACTIONS (6)
  - Pancreatitis necrotising [Unknown]
  - Arthropathy [Unknown]
  - Renal failure [Unknown]
  - Anaemia [Unknown]
  - Skin disorder [Unknown]
  - Splenic infarction [Unknown]

NARRATIVE: CASE EVENT DATE: 201801
